FAERS Safety Report 23653018 (Version 6)
Quarter: 2025Q1

REPORT INFORMATION
  Report Type: Spontaneous
  Country: US (occurrence: US)
  Receive Date: 20240320
  Receipt Date: 20250113
  Transmission Date: 20250408
  Serious: Yes (Other)
  Sender: PFIZER
  Company Number: US-PFIZER INC-PV202400037027

PATIENT
  Age: 63 Year
  Sex: Male

DRUGS (1)
  1. VYNDAMAX [Suspect]
     Active Substance: TAFAMIDIS
     Indication: Acquired ATTR amyloidosis

REACTIONS (9)
  - Lower respiratory tract infection [Unknown]
  - Acquired ATTR amyloidosis [Unknown]
  - Stenosis [Unknown]
  - Disease progression [Unknown]
  - Malaise [Unknown]
  - Insomnia [Unknown]
  - Anxiety [Unknown]
  - Product storage error [Unknown]
  - Poor quality product administered [Unknown]

NARRATIVE: CASE EVENT DATE: 20240318
